FAERS Safety Report 14381198 (Version 1)
Quarter: 2018Q1

REPORT INFORMATION
  Report Type: Spontaneous
  Country: US (occurrence: US)
  Receive Date: 20180111
  Receipt Date: 20180111
  Transmission Date: 20180509
  Serious: Yes (Hospitalization)
  Sender: FDA-Public Use
  Company Number: None

PATIENT
  Age: 68 Year
  Sex: Female

DRUGS (6)
  1. IBRANCE [Suspect]
     Active Substance: PALBOCICLIB
     Indication: BREAST CANCER FEMALE
     Dosage: 125 MG ONCE DAILY FOR 21 DAYS ORAL
     Route: 048
     Dates: start: 20161117
  2. CALCIUM [Concomitant]
     Active Substance: CALCIUM
  3. OXYCODONE [Concomitant]
     Active Substance: OXYCODONE
  4. VITAMIN D3 [Concomitant]
     Active Substance: CHOLECALCIFEROL
  5. LETROZOLE. [Concomitant]
     Active Substance: LETROZOLE
  6. VITAMIN D [Concomitant]
     Active Substance: CHOLECALCIFEROL

REACTIONS (5)
  - Diarrhoea [None]
  - Drug dose omission [None]
  - Dehydration [None]
  - Alopecia [None]
  - Nausea [None]
